FAERS Safety Report 5580128-3 (Version None)
Quarter: 2007Q4

REPORT INFORMATION
  Report Type: 
  Country: None (occurrence: None)
  Receive Date: 20071228
  Receipt Date: 20071212
  Transmission Date: 20080405
  Serious: Yes (Death, Other)
  Sender: FDA-Public Use
  Company Number: 2007-04245

PATIENT

DRUGS (2)
  1. VELCADE [Suspect]
     Indication: MULTIPLE MYELOMA
     Dosage: 1.30 MG/M2
  2. DEXAMETHASONE TAB [Concomitant]

REACTIONS (4)
  - ASTHENIA [None]
  - NEUROPATHY [None]
  - PANCYTOPENIA [None]
  - RENAL FAILURE [None]
